FAERS Safety Report 8394239-0 (Version None)
Quarter: 2012Q2

REPORT INFORMATION
  Report Type: 
  Country: None (occurrence: None)
  Receive Date: 20120530
  Receipt Date: 20120521
  Transmission Date: 20120825
  Serious: Yes (Other)
  Sender: FDA-Public Use
  Company Number: US-US-EMD SERONO, INC.-7134864

PATIENT
  Sex: Female
  Weight: 86 kg

DRUGS (3)
  1. LEVETIRACETAM [Concomitant]
     Indication: CONVULSION
  2. REBIF [Suspect]
     Indication: MULTIPLE SCLEROSIS
     Route: 058
     Dates: start: 20090401
  3. IBUPROFEN [Concomitant]
     Indication: PREMEDICATION

REACTIONS (5)
  - GRAND MAL CONVULSION [None]
  - INJECTION SITE PAIN [None]
  - SYSTEMIC LUPUS ERYTHEMATOSUS [None]
  - LIGAMENT RUPTURE [None]
  - HEAD INJURY [None]
